FAERS Safety Report 8341760-7 (Version None)
Quarter: 2012Q2

REPORT INFORMATION
  Report Type: 
  Country: None (occurrence: None)
  Receive Date: 20120503
  Receipt Date: 20120420
  Transmission Date: 20120825
  Serious: Yes (Hospitalization)
  Sender: FDA-Public Use
  Company Number: JPI-P-021051

PATIENT
  Age: 38 Year
  Sex: Female

DRUGS (4)
  1. XYREM [Suspect]
     Indication: NARCOLEPSY
     Dosage: ,ORAL, 9 GM (4.5 GM,2 IN 1 D),ORAL
     Route: 048
     Dates: start: 20100401
  2. AMPHETAMINE AND DEXTROAMPHETAMINE MIXED SALTS [Concomitant]
  3. PAROXETINE HCL [Concomitant]
  4. LEVONORGESTREL AND ETHINYL ESTRADIOL [Concomitant]

REACTIONS (2)
  - PAIN [None]
  - APPENDICECTOMY [None]
